FAERS Safety Report 11157833 (Version 2)
Quarter: 2015Q2

REPORT INFORMATION
  Report Type: Report from Study
  Country: US (occurrence: US)
  Receive Date: 20150603
  Receipt Date: 20150605
  Transmission Date: 20150821
  Serious: Yes (Other)
  Sender: FDA-Public Use
  Company Number: US-BAXTER-2015BAX028639

PATIENT
  Age: 70 Year
  Sex: Female

DRUGS (1)
  1. HYQVIA [Suspect]
     Active Substance: HUMAN IMMUNOGLOBULIN G\HYALURONIDASE RECOMBINANT HUMAN
     Indication: IMMUNODEFICIENCY COMMON VARIABLE
     Dosage: TOTAL OF 6 DOSES SO FAR
     Route: 058
     Dates: start: 201502

REACTIONS (6)
  - Hypersomnia [Not Recovered/Not Resolved]
  - Burning sensation [Recovering/Resolving]
  - Ear pain [Recovered/Resolved]
  - Pain in extremity [Recovering/Resolving]
  - Malaise [Not Recovered/Not Resolved]
  - Asthenia [Not Recovered/Not Resolved]

NARRATIVE: CASE EVENT DATE: 201502
